FAERS Safety Report 6136980-6 (Version None)
Quarter: 2009Q1

REPORT INFORMATION
  Report Type: 
  Country: None (occurrence: None)
  Receive Date: 20090326
  Receipt Date: 20090326
  Transmission Date: 20090719
  Serious: Yes (Hospitalization)
  Sender: FDA-Public Use
  Company Number: None

PATIENT
  Sex: Female
  Weight: 86 kg

DRUGS (8)
  1. CARBOPLATIN [Suspect]
     Dosage: 702 MG
     Dates: end: 20090303
  2. TAXOL [Suspect]
     Dosage: 336 MG
     Dates: end: 20090303
  3. BENADRYL [Concomitant]
  4. CIMETIDINE HCL [Concomitant]
  5. DEXAMETHASONE [Concomitant]
  6. EZETIMIBE [Concomitant]
  7. ROSUVASTATIN CALCIUM [Concomitant]
  8. TEMAZEPAM [Concomitant]

REACTIONS (2)
  - DIARRHOEA [None]
  - PYREXIA [None]
